FAERS Safety Report 4926632-X (Version None)
Quarter: 2006Q1

REPORT INFORMATION
  Report Type: 
  Country: None (occurrence: None)
  Receive Date: 20060228
  Receipt Date: 20050513
  Transmission Date: 20060701
  Serious: No
  Sender: FDA-Public Use
  Company Number: US-GLAXOSMITHKLINE-A0558507A

PATIENT
  Sex: Male

DRUGS (4)
  1. LAMICTAL [Suspect]
     Indication: BIPOLAR DISORDER
     Dosage: 150MG PER DAY
     Route: 048
  2. PROZAC [Concomitant]
  3. VALPROATE SODIUM [Concomitant]
  4. KLONOPIN [Concomitant]

REACTIONS (3)
  - DYSKINESIA [None]
  - MALAISE [None]
  - MUSCLE TIGHTNESS [None]
